FAERS Safety Report 10011926 (Version 2)
Quarter: 2014Q2

REPORT INFORMATION
  Report Type: Spontaneous
  Country: LT (occurrence: LT)
  Receive Date: 20140314
  Receipt Date: 20140417
  Transmission Date: 20141212
  Serious: Yes (Other)
  Sender: FDA-Public Use
  Company Number: LT-ELI_LILLY_AND_COMPANY-LT201403000986

PATIENT
  Sex: Male

DRUGS (7)
  1. ZYPADHERA [Suspect]
     Indication: SCHIZOPHRENIA
     Dosage: 300 MG, 2/W
     Route: 030
     Dates: start: 2011
  2. METOPROLOL [Concomitant]
     Dosage: 50 MG, UNK
  3. CARDURA [Concomitant]
     Dosage: 4 MG, UNK
  4. LOZAP                              /01121602/ [Concomitant]
     Dosage: 50 MG, UNK
  5. PROCORALAN [Concomitant]
     Dosage: 7.5 MG, UNK
  6. SORTIS [Concomitant]
     Dosage: 20 MG, UNK
  7. SPIRIX [Concomitant]
     Dosage: 25 MG, UNKNOWN

REACTIONS (6)
  - Malaise [Recovered/Resolved]
  - Somnolence [Recovered/Resolved]
  - Dizziness [Recovered/Resolved]
  - Confusional state [Recovered/Resolved]
  - Disorientation [Recovered/Resolved]
  - Anxiety [Recovered/Resolved]
